FAERS Safety Report 4583971-2 (Version None)
Quarter: 2005Q1

REPORT INFORMATION
  Report Type: 
  Country: None (occurrence: None)
  Receive Date: 20050216
  Receipt Date: 20050211
  Transmission Date: 20050727
  Serious: Yes (Hospitalization)
  Sender: FDA-Public Use
  Company Number: US-BRISTOL-MYERS SQUIBB COMPANY-12860656

PATIENT
  Age: 73 Year
  Sex: Male
  Weight: 72 kg

DRUGS (3)
  1. CETUXIMAB [Suspect]
     Indication: SQUAMOUS CELL CARCINOMA
     Dosage: INITIATED ON 10-DEC-04. LAST ADMIN ON 25-JAN-05 (TD ADMIN THIS COURSE=315MG). 3 CYCLES
     Route: 042
     Dates: start: 20050125
  2. CISPLATIN [Suspect]
     Indication: SQUAMOUS CELL CARCINOMA
     Dosage: INITIATED ON 10-DEC-04. LAST ADMIN ON 25-JAN-05 (TD ADMIN THIS COURSE=3743MG). 3 CYCLES
     Route: 042
     Dates: start: 20050125
  3. RADIATION THERAPY [Suspect]
     Indication: SQUAMOUS CELL CARCINOMA
     Dosage: INITIATED ON 10-DEC-04. LAST ADMIN ON 01-FEB-05 (TD ADMIN THIS COURSE=5600CGY). (2GY/D) WEEKS 2-7
     Dates: start: 20050201

REACTIONS (11)
  - CHILLS [None]
  - FATIGUE [None]
  - HERPES SIMPLEX [None]
  - LIP DRY [None]
  - MUCOSAL INFLAMMATION [None]
  - NAUSEA [None]
  - NECK PAIN [None]
  - ODYNOPHAGIA [None]
  - PYREXIA [None]
  - ULCER [None]
  - VOMITING [None]
